FAERS Safety Report 18741710 (Version 4)
Quarter: 2021Q2

REPORT INFORMATION
  Report Type: Report from Study
  Country: None (occurrence: US)
  Receive Date: 20210114
  Receipt Date: 20210526
  Transmission Date: 20210717
  Serious: Yes (Other)
  Sender: FDA-Public Use
  Company Number: US-ABBVIE-20K-163-3631942-00

PATIENT
  Sex: Female

DRUGS (6)
  1. HUMIRA [Suspect]
     Active Substance: ADALIMUMAB
     Route: 058
  2. HUMIRA [Suspect]
     Active Substance: ADALIMUMAB
     Indication: CROHN^S DISEASE
     Route: 058
  3. HUMIRA [Suspect]
     Active Substance: ADALIMUMAB
     Route: 058
  4. HUMIRA [Suspect]
     Active Substance: ADALIMUMAB
     Route: 058
  5. HUMIRA [Suspect]
     Active Substance: ADALIMUMAB
     Route: 058
  6. HUMIRA [Suspect]
     Active Substance: ADALIMUMAB
     Route: 058

REACTIONS (28)
  - Depressed mood [Not Recovered/Not Resolved]
  - Arthropathy [Recovering/Resolving]
  - Pain [Recovering/Resolving]
  - Food intolerance [Unknown]
  - Sinus disorder [Not Recovered/Not Resolved]
  - Dry skin [Recovering/Resolving]
  - Body height decreased [Unknown]
  - Hair disorder [Recovering/Resolving]
  - Dizziness [Unknown]
  - Rash papular [Not Recovered/Not Resolved]
  - Deafness [Not Recovered/Not Resolved]
  - Malaise [Recovering/Resolving]
  - Skin burning sensation [Not Recovered/Not Resolved]
  - Spondylitis [Unknown]
  - Unevaluable event [Unknown]
  - Spinal disorder [Recovering/Resolving]
  - Immune system disorder [Recovering/Resolving]
  - Flatulence [Unknown]
  - Discomfort [Recovering/Resolving]
  - Skin fissures [Unknown]
  - Abdominal distension [Not Recovered/Not Resolved]
  - Nervousness [Unknown]
  - Injection site bruising [Recovering/Resolving]
  - Colitis [Unknown]
  - Arthritis [Unknown]
  - Diverticulum [Unknown]
  - Rheumatoid arthritis [Recovering/Resolving]
  - Feeling abnormal [Recovering/Resolving]

NARRATIVE: CASE EVENT DATE: 2018
